FAERS Safety Report 20762343 (Version 4)
Quarter: 2022Q2

REPORT INFORMATION
  Report Type: Spontaneous
  Country: JP (occurrence: JP)
  Receive Date: 20220428
  Receipt Date: 20220614
  Transmission Date: 20220720
  Serious: Yes (Other)
  Sender: FDA-Public Use
  Company Number: JP-GSKNCCC-Case-01478334_AE-57427

PATIENT

DRUGS (5)
  1. SOTROVIMAB [Suspect]
     Active Substance: SOTROVIMAB
     Indication: Coronavirus test positive
     Dosage: 500 MG, 8 ML (DILUTED WITH SALINE SOLUTION 42 ML), 500 MG/50 ML/100 MIN
     Dates: start: 20220425, end: 20220425
  2. SOTROVIMAB [Suspect]
     Active Substance: SOTROVIMAB
     Indication: COVID-19
  3. TRANEXAMIC ACID [Concomitant]
     Active Substance: TRANEXAMIC ACID
     Indication: COVID-19
     Dosage: 1500 MG
     Route: 048
     Dates: start: 20220422
  4. LASCUFLOXACIN HYDROCHLORIDE [Concomitant]
     Active Substance: LASCUFLOXACIN HYDROCHLORIDE
     Indication: COVID-19
     Dosage: 75 MG
     Route: 048
     Dates: start: 20220422
  5. KIKYOTO [Concomitant]
     Indication: COVID-19
     Dosage: UNK
     Dates: start: 20220422

REACTIONS (2)
  - Dermatitis bullous [Unknown]
  - Oedema peripheral [Unknown]

NARRATIVE: CASE EVENT DATE: 20220401
